FAERS Safety Report 10238390 (Version 1)
Quarter: 2014Q2

REPORT INFORMATION
  Report Type: Spontaneous
  Country: CA (occurrence: CA)
  Receive Date: 20140616
  Receipt Date: 20140616
  Transmission Date: 20141212
  Serious: Yes (Other)
  Sender: FDA-Public Use
  Company Number: CA-BAYER-2014-089339

PATIENT
  Sex: Female
  Weight: 2.82 kg

DRUGS (12)
  1. ACETYLSALICYLIC ACID({=100 MG) [Suspect]
     Dosage: UNK
     Route: 064
  2. ACETYLSALICYLIC ACID({=100 MG) [Suspect]
     Dosage: UNK
     Route: 064
  3. PREDNISONE [Concomitant]
     Dosage: UNK
     Route: 064
  4. PREDNISONE [Concomitant]
     Dosage: UNK
     Route: 064
  5. LABETALOL [Concomitant]
     Dosage: UNK
     Route: 064
  6. LABETALOL [Concomitant]
     Dosage: UNK
     Route: 064
  7. LABETALOL [Concomitant]
     Dosage: DOSE INCREASE
  8. LABETALOL [Concomitant]
     Dosage: DOSE INCREASE
  9. THYROXINE [Concomitant]
     Dosage: UNK
     Route: 064
  10. THYROXINE [Concomitant]
     Dosage: UNK
     Route: 064
  11. INSULIN [Concomitant]
     Route: 064
  12. INSULIN [Concomitant]
     Route: 064

REACTIONS (3)
  - Baseline foetal heart rate variability disorder [None]
  - Foetal heart rate deceleration abnormality [None]
  - Foetal exposure timing unspecified [None]
